FAERS Safety Report 6080796-6 (Version None)
Quarter: 2009Q1

REPORT INFORMATION
  Report Type: 
  Country: None (occurrence: None)
  Receive Date: 20090217
  Receipt Date: 20090204
  Transmission Date: 20090719
  Serious: Yes (Death, Life-Threatening, Hospitalization)
  Sender: FDA-Public Use
  Company Number: ES-PFIZER INC-2009154495

PATIENT

DRUGS (10)
  1. BLINDED *PLACEBO [Suspect]
     Indication: NON-SMALL CELL LUNG CANCER
     Dosage: 37.5 MG, UNK
     Route: 048
     Dates: start: 20081222, end: 20090105
  2. BLINDED SUNITINIB MALATE [Suspect]
     Indication: NON-SMALL CELL LUNG CANCER
     Dosage: 37.5 MG, UNK
     Route: 048
     Dates: start: 20081222, end: 20090105
  3. *ERLOTINIB [Suspect]
     Indication: NON-SMALL CELL LUNG CANCER
     Dosage: 150 MG, UNK
     Route: 048
     Dates: start: 20081222, end: 20090105
  4. SALBUTAMOL SULFATE [Concomitant]
     Route: 055
     Dates: end: 20090127
  5. SERETIDE [Concomitant]
     Route: 055
     Dates: end: 20090105
  6. BUPRENORPHINE [Concomitant]
     Route: 062
     Dates: end: 20090105
  7. IBUPROFEN [Concomitant]
     Route: 048
     Dates: end: 20090105
  8. OMEPRAZOLE [Concomitant]
     Route: 048
     Dates: end: 20090105
  9. FUROSEMIDE [Concomitant]
     Route: 048
     Dates: start: 20081229, end: 20090119
  10. FUROSEMIDE [Concomitant]
     Dosage: UNK
     Route: 042
     Dates: start: 20081229, end: 20090119

REACTIONS (3)
  - DYSPNOEA [None]
  - OEDEMA PERIPHERAL [None]
  - SUPERINFECTION [None]
